FAERS Safety Report 14773202 (Version 4)
Quarter: 2018Q2

REPORT INFORMATION
  Report Type: Spontaneous
  Country: JP (occurrence: JP)
  Receive Date: 20180418
  Receipt Date: 20180625
  Transmission Date: 20180711
  Serious: Yes (Hospitalization, Other)
  Sender: FDA-Public Use
  Company Number: JP-AMGEN-JPNSP2018051641

PATIENT
  Age: 95 Year
  Sex: Female
  Weight: 42 kg

DRUGS (12)
  1. EBRANTIL [Concomitant]
     Active Substance: URAPIDIL
     Indication: URINARY RETENTION
     Dosage: 15 MG, BID
     Route: 048
     Dates: start: 20170327
  2. AZOPT [Concomitant]
     Active Substance: BRINZOLAMIDE
     Indication: GLAUCOMA
     Dosage: 1 DROPS, BID
     Route: 050
  3. AMLODIPINE [Concomitant]
     Active Substance: AMLODIPINE BESYLATE
     Indication: HYPERTENSION
     Dosage: 2.5 MG, QD
     Route: 048
  4. XARELTO [Concomitant]
     Active Substance: RIVAROXABAN
     Indication: ATRIAL FIBRILLATION
     Dosage: 10 MG, QD
     Route: 048
     Dates: start: 20131210
  5. LUNESTA [Concomitant]
     Active Substance: ESZOPICLONE
     Indication: INSOMNIA
     Dosage: 0.5 MG, QD
     Route: 048
     Dates: start: 20170328
  6. PRAVASTATIN. [Concomitant]
     Active Substance: PRAVASTATIN
     Dosage: 5 MG, QD
     Route: 048
  7. TAPCOM [Concomitant]
     Active Substance: TAFLUPROST\TIMOLOL
     Indication: GLAUCOMA
     Dosage: 1 DROPS, QD
     Route: 050
  8. TAPCOM [Concomitant]
     Active Substance: TAFLUPROST\TIMOLOL
     Dosage: 1 DROPS, QD
     Route: 050
  9. RABEPRAZOLE SODIUM. [Concomitant]
     Active Substance: RABEPRAZOLE SODIUM
     Dosage: 10 MG, QD
     Route: 048
  10. CALONAL [Concomitant]
     Active Substance: ACETAMINOPHEN
     Indication: METASTASES TO BONE
     Dosage: 400 MG, QID
     Route: 048
     Dates: start: 20161003
  11. RANMARK [Suspect]
     Active Substance: DENOSUMAB
     Indication: METASTASES TO BONE
     Dosage: 120 MG, Q4WK, 15 TIMES
     Route: 058
     Dates: start: 20161017, end: 20180122
  12. DENOTAS [Concomitant]
     Active Substance: CALCIUM CARBONATE\CHOLECALCIFEROL\MAGNESIUM CARBONATE
     Dosage: UNK
     Route: 065
     Dates: start: 20161017, end: 20180218

REACTIONS (2)
  - Osteomyelitis [Not Recovered/Not Resolved]
  - Osteonecrosis of jaw [Not Recovered/Not Resolved]

NARRATIVE: CASE EVENT DATE: 20180120
